FAERS Safety Report 6085999-2 (Version None)
Quarter: 2009Q1

REPORT INFORMATION
  Report Type: 
  Country: None (occurrence: None)
  Receive Date: 20090217
  Receipt Date: 20090217
  Transmission Date: 20090719
  Serious: No
  Sender: FDA-Public Use
  Company Number: None

PATIENT
  Age: 71 Year
  Sex: Male
  Weight: 99.7913 kg

DRUGS (1)
  1. PROSCAR [Suspect]
     Indication: PROSTATOMEGALY
     Dosage: 5 MG ONE DAILY PO
     Route: 048
     Dates: start: 20050101, end: 20071029

REACTIONS (4)
  - BREAST ENLARGEMENT [None]
  - BREAST MASS [None]
  - NIPPLE PAIN [None]
  - SKIN HYPERTROPHY [None]
